FAERS Safety Report 24666044 (Version 2)
Quarter: 2024Q4

REPORT INFORMATION
  Report Type: Spontaneous
  Country: JP (occurrence: JP)
  Receive Date: 20241126
  Receipt Date: 20241217
  Transmission Date: 20250114
  Serious: Yes (Other)
  Sender: BAXTER
  Company Number: JP-shionogi-202400002704

PATIENT
  Age: 6 Decade
  Sex: Male

DRUGS (8)
  1. IFOSFAMIDE [Suspect]
     Active Substance: IFOSFAMIDE
     Indication: Diffuse large B-cell lymphoma stage IV
     Dosage: ICE THERAPY INTRODUCED AS A RESCUE THERAPY, INJECTION
     Route: 065
  2. IFOSFAMIDE [Suspect]
     Active Substance: IFOSFAMIDE
     Indication: Diffuse large B-cell lymphoma recurrent
  3. CARBOPLATIN [Concomitant]
     Active Substance: CARBOPLATIN
     Indication: Diffuse large B-cell lymphoma stage IV
     Dosage: ICE THERAPY INTRODUCED AS A RESCUE THERAPY
     Route: 065
  4. CARBOPLATIN [Concomitant]
     Active Substance: CARBOPLATIN
     Indication: Diffuse large B-cell lymphoma recurrent
  5. ETOPOSIDE [Concomitant]
     Active Substance: ETOPOSIDE
     Indication: Diffuse large B-cell lymphoma stage IV
     Dosage: ICE THERAPY INTRODUCED AS A RESCUE THERAPY
     Route: 065
  6. ETOPOSIDE [Concomitant]
     Active Substance: ETOPOSIDE
     Indication: Diffuse large B-cell lymphoma recurrent
  7. MESNA [Concomitant]
     Active Substance: MESNA
     Dosage: DAILY DOSE OF MESNA WAS STARTED AT THE AMOUNT EQUIVALENT TO 60% OF THE DAILY DOSE OF IFOSFAMIDE (IFM
     Route: 065
  8. MESNA [Concomitant]
     Active Substance: MESNA
     Dosage: DAILY DOSE OF MESNA INCREASED FROM 60% TO 100% OF THE DAILY DOSE OF IFM, FROM CYCLE 2 OF ICE THERAPY
     Route: 065

REACTIONS (4)
  - Cystitis haemorrhagic [Recovered/Resolved]
  - Haematuria [Recovered/Resolved]
  - Dysuria [Recovered/Resolved]
  - Haemorrhage urinary tract [Recovered/Resolved]
